FAERS Safety Report 9416166 (Version 1)
Quarter: 2013Q3

REPORT INFORMATION
  Report Type: Spontaneous
  Country: US (occurrence: US)
  Receive Date: 20130724
  Receipt Date: 20130724
  Transmission Date: 20140515
  Serious: Yes (Death)
  Sender: FDA-Public Use
  Company Number: US-ROCHE-1252250

PATIENT
  Age: 60 Year
  Sex: Male

DRUGS (11)
  1. XELODA [Suspect]
     Indication: PANCREATIC CARCINOMA
     Dosage: BID X14 DAY
     Route: 048
     Dates: start: 20130510
  2. ONDANSETRON [Concomitant]
     Route: 065
     Dates: start: 20130620
  3. OXYCODONE [Concomitant]
     Dosage: IMMEDIATE
     Route: 065
     Dates: start: 20130611
  4. FENTANYL [Concomitant]
     Dosage: 25MCG/HR PATCH
     Route: 065
     Dates: start: 20130611
  5. LANTUS [Concomitant]
     Route: 065
     Dates: start: 20130525
  6. AMLODIPINE BESYLATE [Concomitant]
     Route: 065
     Dates: start: 20130509
  7. HYDROXYZINE HCL [Concomitant]
     Route: 065
     Dates: start: 20130509
  8. PROCHLORPERAZINE [Concomitant]
     Route: 065
  9. NOVOLOG [Concomitant]
  10. POLYETHYLENE GLYCOL [Concomitant]
     Dosage: 3350 NF POW
     Route: 065
  11. EDARBI [Concomitant]
     Route: 065

REACTIONS (1)
  - Death [Fatal]
